FAERS Safety Report 12599126 (Version 1)
Quarter: 2016Q3

REPORT INFORMATION
  Report Type: Spontaneous
  Country: US (occurrence: US)
  Receive Date: 20160727
  Receipt Date: 20160727
  Transmission Date: 20161109
  Serious: No
  Sender: FDA-Public Use
  Company Number: US-SA-2015SA204405

PATIENT
  Age: 81 Year
  Sex: Female

DRUGS (1)
  1. AMBIEN CR [Suspect]
     Active Substance: ZOLPIDEM TARTRATE
     Indication: SLEEP DISORDER
     Dosage: START DATE: SEVERAL YEARS AGO
     Route: 048

REACTIONS (2)
  - Incorrect dose administered [Unknown]
  - Incorrect drug administration duration [Unknown]
